FAERS Safety Report 9961607 (Version 1)
Quarter: 2014Q1

REPORT INFORMATION
  Report Type: Report from Study
  Country: US (occurrence: US)
  Receive Date: 20140305
  Receipt Date: 20140305
  Transmission Date: 20141002
  Serious: No
  Sender: FDA-Public Use
  Company Number: US-ABBVIE-13P-163-1110054-00

PATIENT
  Age: 55 Year
  Sex: Female
  Weight: 65.83 kg

DRUGS (2)
  1. HUMIRA [Suspect]
     Indication: CROHN^S DISEASE
     Dates: start: 2010, end: 201301
  2. HUMIRA [Suspect]
     Dates: start: 20130624

REACTIONS (3)
  - Precancerous skin lesion [Recovered/Resolved]
  - Precancerous skin lesion [Unknown]
  - Arthralgia [Not Recovered/Not Resolved]
